FAERS Safety Report 9856044 (Version 3)
Quarter: 2014Q3

REPORT INFORMATION
  Report Type: Spontaneous
  Country: PA (occurrence: PA)
  Receive Date: 20140130
  Receipt Date: 20140919
  Transmission Date: 20150326
  Serious: Yes (Congenital Anomaly, Other)
  Sender: FDA-Public Use
  Company Number: PA-SA-2014SA011579

PATIENT
  Sex: Female
  Weight: 2.5 kg

DRUGS (2)
  1. LANTUS SOLOSTAR [Suspect]
     Active Substance: INSULIN GLARGINE
     Indication: MATERNAL EXPOSURE TIMING UNSPECIFIED
     Route: 064
  2. LISINOPRIL. [Suspect]
     Active Substance: LISINOPRIL
     Indication: MATERNAL EXPOSURE TIMING UNSPECIFIED
     Route: 064

REACTIONS (6)
  - Thrombosis [Recovered/Resolved]
  - Hypophagia [Recovered/Resolved]
  - Foetal exposure during pregnancy [Unknown]
  - Myocardial infarction [Recovered/Resolved]
  - Hypoplastic right heart syndrome [Recovered/Resolved]
  - Cardiac arrest [Recovered/Resolved]

NARRATIVE: CASE EVENT DATE: 20130818
